FAERS Safety Report 7551319-7 (Version None)
Quarter: 2011Q2

REPORT INFORMATION
  Report Type: 
  Country: None (occurrence: None)
  Receive Date: 20110616
  Receipt Date: 20110613
  Transmission Date: 20111010
  Serious: Yes (Other)
  Sender: FDA-Public Use
  Company Number: BR-PFIZER INC-2011128768

PATIENT
  Age: 66 Year
  Sex: Male

DRUGS (1)
  1. DEPO-MEDROL [Suspect]
     Indication: KELOID SCAR
     Dosage: UNK MG, 1X/DAY
     Route: 030
     Dates: end: 20110101

REACTIONS (2)
  - WOUND COMPLICATION [None]
  - IMPAIRED HEALING [None]
